FAERS Safety Report 7728088-0 (Version None)
Quarter: 2011Q3

REPORT INFORMATION
  Report Type: 
  Country: None (occurrence: None)
  Receive Date: 20110905
  Receipt Date: 20110825
  Transmission Date: 20111222
  Serious: Yes (Other)
  Sender: FDA-Public Use
  Company Number: VE-AMGEN-VENSP2011040863

PATIENT
  Age: 26 Year
  Sex: Female

DRUGS (2)
  1. ENBREL [Suspect]
     Indication: RHEUMATOID ARTHRITIS
     Dosage: UNK
     Route: 065
     Dates: start: 20091009, end: 20110628
  2. METHOTREXATE [Concomitant]
     Dosage: UNK
     Route: 048
     Dates: end: 20110301

REACTIONS (4)
  - FALL [None]
  - ABDOMINAL PAIN [None]
  - VAGINAL HAEMORRHAGE [None]
  - PLACENTAL DISORDER [None]
